FAERS Safety Report 5197610-3 (Version None)
Quarter: 2007Q1

REPORT INFORMATION
  Report Type: 
  Country: None (occurrence: None)
  Receive Date: 20070103
  Receipt Date: 20061019
  Transmission Date: 20070707
  Serious: Yes (Other)
  Sender: FDA-Public Use
  Company Number: IT-PFIZER INC-2006134945

PATIENT
  Sex: Male

DRUGS (1)
  1. FELDENE [Suspect]
     Route: 060

REACTIONS (2)
  - ANAL FISSURE [None]
  - LIP SWELLING [None]
